FAERS Safety Report 8777804 (Version 2)
Quarter: 2012Q4

REPORT INFORMATION
  Report Type: 
  Country: DE (occurrence: DE)
  Receive Date: 20120911
  Receipt Date: 20121026
  Transmission Date: 20130627
  Serious: Yes (Other)
  Sender: FDA-Public Use
  Company Number: PHHY2012DE078554

PATIENT
  Sex: Male

DRUGS (2)
  1. LEPONEX [Suspect]
     Dosage: 225 mg, daily
  2. HALDOL [Concomitant]

REACTIONS (2)
  - Lymphocytosis [Not Recovered/Not Resolved]
  - Leukopenia [Recovered/Resolved]
